FAERS Safety Report 7527019-6 (Version None)
Quarter: 2011Q2

REPORT INFORMATION
  Report Type: 
  Country: None (occurrence: None)
  Receive Date: 20110606
  Receipt Date: 20110525
  Transmission Date: 20111010
  Serious: Yes (Other)
  Sender: FDA-Public Use
  Company Number: CA-BAYER-2011-045184

PATIENT
  Sex: Male

DRUGS (6)
  1. AVELOX [Suspect]
     Dosage: UNK
     Dates: end: 20110525
  2. ASPIRIN [Concomitant]
  3. BISOPROLOL FUMARATE [Concomitant]
  4. CRESTOR [Concomitant]
  5. ATACAND [Concomitant]
  6. EZETIMIBE [Concomitant]

REACTIONS (1)
  - ELECTROCARDIOGRAM QT PROLONGED [None]
